FAERS Safety Report 10231591 (Version 1)
Quarter: 2014Q2

REPORT INFORMATION
  Report Type: Spontaneous
  Country: GB (occurrence: GB)
  Receive Date: 20140611
  Receipt Date: 20140611
  Transmission Date: 20141212
  Serious: Yes (Life-Threatening)
  Sender: FDA-Public Use
  Company Number: ALCN2014GB003322

PATIENT
  Age: 42 Year
  Sex: Male

DRUGS (1)
  1. CIPROFLOXACIN [Suspect]
     Dosage: UNK
     Dates: start: 20140521

REACTIONS (3)
  - Furuncle [Unknown]
  - Urticaria [Unknown]
  - Swelling [Recovered/Resolved]
